FAERS Safety Report 6039636-3 (Version None)
Quarter: 2009Q1

REPORT INFORMATION
  Report Type: 
  Country: None (occurrence: None)
  Receive Date: 20090116
  Receipt Date: 20090113
  Transmission Date: 20090719
  Serious: Yes (Death)
  Sender: FDA-Public Use
  Company Number: US-BRISTOL-MYERS SQUIBB COMPANY-14470793

PATIENT
  Age: 38 Year
  Sex: Male

DRUGS (2)
  1. METFORMIN HCL [Suspect]
  2. ACETAMINOPHEN AND CODEINE PHOSPHATE [Suspect]
     Dosage: 1 DF= 300 MG/30 MG

REACTIONS (1)
  - COMPLETED SUICIDE [None]
